FAERS Safety Report 6452588-7 (Version None)
Quarter: 2009Q4

REPORT INFORMATION
  Report Type: 
  Country: None (occurrence: None)
  Receive Date: 20091124
  Receipt Date: 20091111
  Transmission Date: 20100525
  Serious: Yes (Other)
  Sender: FDA-Public Use
  Company Number: US-RB-025503-09

PATIENT
  Age: 3 Year
  Sex: Male
  Weight: 14.85 kg

DRUGS (1)
  1. MUCINEX CHILDREN'S EXPECTORANT [Suspect]
     Dosage: CONSUMER GAVE SON HALF A TEA SPOON OF PRODUCT
     Route: 048
     Dates: start: 20091110

REACTIONS (9)
  - ACCIDENTAL DRUG INTAKE BY CHILD [None]
  - EXPIRED DRUG ADMINISTERED [None]
  - EYE ROLLING [None]
  - FLATULENCE [None]
  - GASTROINTESTINAL PAIN [None]
  - LOSS OF CONSCIOUSNESS [None]
  - SCREAMING [None]
  - SOMNOLENCE [None]
  - VOMITING [None]
